FAERS Safety Report 9459208 (Version 1)
Quarter: 2013Q3

REPORT INFORMATION
  Report Type: Spontaneous
  Country: GB (occurrence: GB)
  Receive Date: 20130814
  Receipt Date: 20130814
  Transmission Date: 20140515
  Serious: Yes (Life-Threatening, Disabling, Other)
  Sender: FDA-Public Use
  Company Number: GB-ROCHE-1260262

PATIENT
  Age: 28 Year
  Sex: Female
  Weight: 96.61 kg

DRUGS (1)
  1. ROACCUTANE [Suspect]
     Indication: ACNE
     Route: 048
     Dates: start: 20120101, end: 20120401

REACTIONS (12)
  - Activities of daily living impaired [Not Recovered/Not Resolved]
  - Anxiety [Not Recovered/Not Resolved]
  - Depression [Not Recovered/Not Resolved]
  - Dry eye [Recovered/Resolved]
  - Fear [Not Recovered/Not Resolved]
  - Generalised anxiety disorder [Not Recovered/Not Resolved]
  - Heart rate increased [Not Recovered/Not Resolved]
  - Mood swings [Not Recovered/Not Resolved]
  - Panic attack [Recovered/Resolved with Sequelae]
  - Panic disorder [Recovering/Resolving]
  - Social phobia [Recovering/Resolving]
  - Suicidal ideation [Recovering/Resolving]
